FAERS Safety Report 7374127-9 (Version None)
Quarter: 2011Q1

REPORT INFORMATION
  Report Type: 
  Country: None (occurrence: None)
  Receive Date: 20110325
  Receipt Date: 20110316
  Transmission Date: 20110831
  Serious: Yes (Other)
  Sender: FDA-Public Use
  Company Number: US-PFIZER INC-HQWYE032815DEC05

PATIENT
  Sex: Female
  Weight: 51 kg

DRUGS (5)
  1. ACETYLSALICYLIC ACID [Concomitant]
     Indication: PYREXIA
     Dosage: UNK
     Dates: end: 20030101
  2. DOVONEX [Concomitant]
     Indication: PSORIASIS
     Dosage: UNK
     Dates: start: 19700101
  3. MACRODANTIN [Concomitant]
     Dosage: UNK
     Dates: start: 19960101
  4. PREMPRO [Suspect]
     Indication: HORMONE REPLACEMENT THERAPY
     Dosage: UNK
     Route: 048
     Dates: start: 20000224, end: 20040513
  5. PROZAC [Concomitant]
     Indication: DEPRESSION
     Dosage: UNK
     Dates: start: 19910101

REACTIONS (1)
  - BREAST CANCER [None]
